FAERS Safety Report 7458705-4 (Version None)
Quarter: 2011Q2

REPORT INFORMATION
  Report Type: 
  Country: None (occurrence: None)
  Receive Date: 20110504
  Receipt Date: 20110420
  Transmission Date: 20111010
  Serious: Yes (Other)
  Sender: FDA-Public Use
  Company Number: US-JNJFOC-20110411469

PATIENT
  Age: 42 Year
  Sex: Female
  Weight: 68.04 kg

DRUGS (3)
  1. ROGAINE (FOR WOMEN) [Suspect]
     Route: 061
  2. ROGAINE (FOR WOMEN) [Suspect]
     Indication: ALOPECIA
     Route: 061
  3. UNKNOWN MEDICATION [Concomitant]

REACTIONS (5)
  - APPLICATION SITE BURN [None]
  - APPLICATION SITE SCAR [None]
  - APPLICATION SITE DISCOLOURATION [None]
  - ALOPECIA [None]
  - APPLICATION SITE VESICLES [None]
